FAERS Safety Report 10188041 (Version 3)
Quarter: 2014Q2

REPORT INFORMATION
  Report Type: Spontaneous
  Country: TR (occurrence: TR)
  Receive Date: 20140522
  Receipt Date: 20140609
  Transmission Date: 20141212
  Serious: Yes (Other)
  Sender: FDA-Public Use
  Company Number: TR-PFIZER INC-2014123288

PATIENT
  Age: 4 Year
  Sex: Male

DRUGS (3)
  1. VFEND [Suspect]
     Indication: EVIDENCE BASED TREATMENT
     Dosage: 9 MG, UNK LOADING DOSE
     Route: 042
  2. VFEND [Suspect]
     Dosage: 8 MG, UNK MAINTENANCE DOSE
     Dates: end: 20140501
  3. CYCLOSPORINE [Concomitant]

REACTIONS (1)
  - Blindness transient [Recovered/Resolved]
